FAERS Safety Report 12962804 (Version 3)
Quarter: 2017Q1

REPORT INFORMATION
  Report Type: Spontaneous
  Country: GB (occurrence: GB)
  Receive Date: 20161121
  Receipt Date: 20170206
  Transmission Date: 20170428
  Serious: Yes (Hospitalization)
  Sender: FDA-Public Use
  Company Number: GB-GLENMARK GENERICS (EUROPE) LTD.-2016GMK024973

PATIENT
  Age: 59 Year
  Sex: Female

DRUGS (1)
  1. RIZATRIPTAN 10MG ORODISPERSIBLE TABLET [Suspect]
     Active Substance: RIZATRIPTAN BENZOATE
     Indication: MIGRAINE
     Dosage: 1 DF, QD
     Route: 048

REACTIONS (5)
  - Drug effect prolonged [Unknown]
  - Product solubility abnormal [Unknown]
  - Drug ineffective [Unknown]
  - Fall [Unknown]
  - Retrograde amnesia [Unknown]
